FAERS Safety Report 13439470 (Version 5)
Quarter: 2019Q2

REPORT INFORMATION
  Report Type: Spontaneous
  Country: US (occurrence: US)
  Receive Date: 20170413
  Receipt Date: 20190415
  Transmission Date: 20190711
  Serious: No
  Sender: FDA-Public Use
  Company Number: US-PFIZER INC-2017156042

PATIENT
  Age: 53 Year
  Sex: Female
  Weight: 108 kg

DRUGS (9)
  1. GENOTROPIN [Suspect]
     Active Substance: SOMATROPIN
     Indication: GROWTH HORMONE DEFICIENCY
     Dosage: 0.5 MG, DAILY
     Route: 058
     Dates: start: 2008
  2. FISH OIL/TOCOPHERYL ACETATE [Concomitant]
     Dosage: 2000 MG, DAILY
     Route: 048
  3. CALCIUM [Concomitant]
     Active Substance: CALCIUM
     Indication: SUPPLEMENTATION THERAPY
     Dosage: 1 DF, 2X/DAY
     Route: 048
  4. SYNTHROID [Concomitant]
     Active Substance: LEVOTHYROXINE SODIUM
     Dosage: 75 UG, 1X/DAY
     Route: 048
  5. B COMPLEX ORAL [Concomitant]
     Dosage: UNK
     Route: 048
  6. GENOTROPIN [Suspect]
     Active Substance: SOMATROPIN
     Dosage: 0.2 MG, DAILY
     Route: 058
     Dates: start: 2009
  7. GENOTROPIN [Suspect]
     Active Substance: SOMATROPIN
     Dosage: 0.6 MG, DAILY
     Dates: start: 20090917
  8. ASPIRIN (E.C.) [Concomitant]
     Active Substance: ASPIRIN
     Dosage: 81 MG, DAILY
     Route: 048
  9. VITAMIN D3 [Concomitant]
     Active Substance: CHOLECALCIFEROL
     Indication: SUPPLEMENTATION THERAPY
     Dosage: 2000 IU, DAILY
     Route: 048

REACTIONS (7)
  - Product dose omission [Unknown]
  - Carpal tunnel syndrome [Unknown]
  - Alanine aminotransferase increased [Unknown]
  - Hyperglycaemia [Recovering/Resolving]
  - Arthralgia [Recovered/Resolved]
  - Swelling [Unknown]
  - Low density lipoprotein increased [Unknown]

NARRATIVE: CASE EVENT DATE: 20131122
